FAERS Safety Report 6736252-2 (Version None)
Quarter: 2010Q2

REPORT INFORMATION
  Report Type: 
  Country: None (occurrence: None)
  Receive Date: 20100520
  Receipt Date: 20100520
  Transmission Date: 20101027
  Serious: Yes (Hospitalization)
  Sender: FDA-Public Use
  Company Number: None

PATIENT
  Age: 73 Year
  Sex: Male
  Weight: 57.1532 kg

DRUGS (14)
  1. ERLOTINIB HYDROCHLORIDE [Suspect]
     Indication: NON-SMALL CELL LUNG CANCER
     Dosage: 150MG DAILY
     Dates: start: 20100326, end: 20100507
  2. BEVACIZIMAB [Suspect]
     Indication: NON-SMALL CELL LUNG CANCER
     Dosage: 893 MG
     Dates: start: 20100326, end: 20100416
  3. CALCARB [Concomitant]
  4. OXYCODONE [Concomitant]
  5. VENTOLIN HFA AEROSOL [Concomitant]
  6. ADVAIR DISKUS POWDER [Concomitant]
  7. FOLIC ACID [Concomitant]
  8. OXYCONTIN [Concomitant]
  9. PREDNISONE [Concomitant]
  10. TIOTROPIUM [Concomitant]
  11. SPIRIVA [Concomitant]
  12. ADVAIR DISKUS 100/50 [Concomitant]
  13. ALBUTEROL [Concomitant]
  14. PREDNISONE [Concomitant]

REACTIONS (7)
  - CHRONIC OBSTRUCTIVE PULMONARY DISEASE [None]
  - CONDITION AGGRAVATED [None]
  - DYSPNOEA [None]
  - EJECTION FRACTION DECREASED [None]
  - EMPHYSEMA [None]
  - FATIGUE [None]
  - NAUSEA [None]
